FAERS Safety Report 10775781 (Version 1)
Quarter: 2015Q1

REPORT INFORMATION
  Report Type: Spontaneous
  Country: US (occurrence: None)
  Receive Date: 20150205
  Receipt Date: 20150205
  Transmission Date: 20150721
  Serious: Yes (Other)
  Sender: FDA-Public Use
  Company Number: None

PATIENT
  Age: 72 Year
  Sex: Male
  Weight: 71.22 kg

DRUGS (1)
  1. CLINDAMYCIN [Suspect]
     Active Substance: CLINDAMYCIN\CLINDAMYCIN PHOSPHATE
     Indication: TOOTH EXTRACTION
     Dosage: 3 PILLS
     Route: 048
     Dates: start: 20150107, end: 20150109

REACTIONS (3)
  - Haemorrhage [None]
  - Contusion [None]
  - Epistaxis [None]

NARRATIVE: CASE EVENT DATE: 20150107
